FAERS Safety Report 23132699 (Version 1)
Quarter: 2023Q4

REPORT INFORMATION
  Report Type: Spontaneous
  Country: JP (occurrence: JP)
  Receive Date: 20231101
  Receipt Date: 20231101
  Transmission Date: 20240110
  Serious: Yes (Other)
  Sender: FDA-Public Use
  Company Number: JP-ORG100014127-2023001039

PATIENT
  Age: 81 Year
  Sex: Female

DRUGS (3)
  1. METYRAPONE [Suspect]
     Active Substance: METYRAPONE
     Indication: Hyperadrenocorticism
     Dosage: DOSE SLOWLY INCREASED (TITRATION)
     Route: 048
  2. METYRAPONE [Suspect]
     Active Substance: METYRAPONE
     Indication: Hyperadrenocorticism
     Route: 048
  3. DEXAMETHASONE [Concomitant]
     Active Substance: DEXAMETHASONE
     Indication: Supplementation therapy
     Route: 048

REACTIONS (2)
  - Pneumocystis jirovecii pneumonia [Recovered/Resolved]
  - Blood corticotrophin decreased [Unknown]
